FAERS Safety Report 14670572 (Version 2)
Quarter: 2018Q2

REPORT INFORMATION
  Report Type: Spontaneous
  Country: US (occurrence: US)
  Receive Date: 20180322
  Receipt Date: 20180515
  Transmission Date: 20180711
  Serious: Yes (Death, Hospitalization, Other)
  Sender: FDA-Public Use
  Company Number: US-BRISTOL-MYERS SQUIBB COMPANY-BMS-2018-024309

PATIENT
  Sex: Male
  Weight: 113.3 kg

DRUGS (1)
  1. ELIQUIS [Suspect]
     Active Substance: APIXABAN
     Indication: COAGULOPATHY
     Dosage: 5 MG, BID
     Route: 048
     Dates: start: 201710, end: 20180201

REACTIONS (2)
  - Septic shock [Fatal]
  - Product use in unapproved indication [Unknown]
